FAERS Safety Report 13895076 (Version 1)
Quarter: 2017Q3

REPORT INFORMATION
  Report Type: Spontaneous
  Country: US (occurrence: US)
  Receive Date: 20170817
  Receipt Date: 20170817
  Transmission Date: 20171127
  Serious: Yes (Other)
  Sender: FDA-Public Use
  Company Number: None

PATIENT
  Sex: Female
  Weight: 79.2 kg

DRUGS (11)
  1. VALACYCLOVIR [Suspect]
     Active Substance: VALACYCLOVIR HYDROCHLORIDE
     Indication: EYE INFECTION
     Dosage: ?          QUANTITY:1 CAPSULE(S);?
     Route: 048
     Dates: start: 20170623
  2. MULTIVITAMIN W/MINERALS [Concomitant]
     Active Substance: MINERALS\VITAMINS
  3. MINIVELLE [Concomitant]
     Active Substance: ESTRADIOL
  4. CHINESE HERBS [Concomitant]
     Active Substance: HERBALS
  5. CELOCOBIX [Concomitant]
  6. ACYCLOVIR. [Concomitant]
     Active Substance: ACYCLOVIR
  7. CLINDAMYCIN PHOSATE [Concomitant]
  8. VITAMIN D [Concomitant]
     Active Substance: CHOLECALCIFEROL
  9. MAGNESIUM W/CALCIUM [Concomitant]
  10. FLUOROMETHALONE [Concomitant]
  11. VITAMINS B [Concomitant]

REACTIONS (7)
  - Joint stiffness [None]
  - Joint swelling [None]
  - Product substitution issue [None]
  - Syncope [None]
  - Fall [None]
  - Peripheral swelling [None]
  - Laceration [None]

NARRATIVE: CASE EVENT DATE: 20170815
